FAERS Safety Report 5074248-X (Version None)
Quarter: 2006Q3

REPORT INFORMATION
  Report Type: 
  Country: None (occurrence: None)
  Receive Date: 20060803
  Receipt Date: 20060718
  Transmission Date: 20061208
  Serious: Yes (Other)
  Sender: FDA-Public Use
  Company Number: 227994

PATIENT
  Age: 63 Year
  Sex: Male
  Weight: 88 kg

DRUGS (5)
  1. AVASTIN [Suspect]
     Indication: RENAL CANCER METASTATIC
     Dosage: 800 MG, Q2W, INTRAVENOUS
     Route: 042
     Dates: start: 20051215, end: 20060615
  2. ANALGESICS (ANALGESIC NOS) [Concomitant]
  3. SUNITINIB MALATE (SUNITINIB MALATE) [Concomitant]
  4. INTERFERON ALFA-2A (INTERFERON ALFA-2A) [Concomitant]
  5. FLUOROURACIL [Concomitant]

REACTIONS (1)
  - POLYCYTHAEMIA [None]
